FAERS Safety Report 7692501-8 (Version None)
Quarter: 2011Q3

REPORT INFORMATION
  Report Type: 
  Country: None (occurrence: None)
  Receive Date: 20110819
  Receipt Date: 20110809
  Transmission Date: 20111222
  Serious: Yes (Hospitalization, Disabling)
  Sender: FDA-Public Use
  Company Number: US-MERCK-1104USA00221

PATIENT
  Age: 74 Year
  Sex: Female
  Weight: 66 kg

DRUGS (6)
  1. FOSAMAX [Suspect]
     Route: 048
     Dates: start: 20071001, end: 20080401
  2. FOSAMAX [Suspect]
     Route: 048
     Dates: start: 20071001, end: 20080401
  3. FOSAMAX [Suspect]
     Indication: OSTEOPOROSIS PROPHYLAXIS
     Route: 048
     Dates: start: 20020201, end: 20060101
  4. FOSAMAX PLUS D [Suspect]
     Indication: OSTEOPOROSIS
     Route: 048
     Dates: start: 20060101, end: 20080101
  5. FOSAMAX [Suspect]
     Indication: OSTEOPOROSIS
     Route: 048
     Dates: start: 20020201, end: 20060101
  6. ACTONEL [Suspect]
     Indication: OSTEOPOROSIS
     Route: 065
     Dates: start: 20011019, end: 20020201

REACTIONS (33)
  - ANAEMIA [None]
  - UTERINE PROLAPSE [None]
  - TOOTH DISORDER [None]
  - BRUXISM [None]
  - RIB FRACTURE [None]
  - VERTIGO POSITIONAL [None]
  - CAROTID ARTERY DISEASE [None]
  - CYSTITIS [None]
  - CEREBRAL ATROPHY [None]
  - CHEST PAIN [None]
  - MOUTH ULCERATION [None]
  - GASTROOESOPHAGEAL REFLUX DISEASE [None]
  - HYPERTENSION [None]
  - JAW DISORDER [None]
  - SPINAL FRACTURE [None]
  - DIZZINESS [None]
  - ORAL DISORDER [None]
  - ACTINIC KERATOSIS [None]
  - SEBORRHOEIC KERATOSIS [None]
  - EXOSTOSIS [None]
  - SJOGREN'S SYNDROME [None]
  - VITREOUS DETACHMENT [None]
  - PAIN IN JAW [None]
  - ASTHENIA [None]
  - TRANSIENT ISCHAEMIC ATTACK [None]
  - HYPERPROTEINAEMIA [None]
  - HAEMORRHOIDS [None]
  - STOMATITIS [None]
  - INCREASED TENDENCY TO BRUISE [None]
  - OSTEONECROSIS OF JAW [None]
  - ABDOMINAL PAIN [None]
  - CATARACT NUCLEAR [None]
  - OSTEOPENIA [None]
